FAERS Safety Report 20345593 (Version 1)
Quarter: 2022Q1

REPORT INFORMATION
  Report Type: Report from Study
  Country: BR (occurrence: BR)
  Receive Date: 20220118
  Receipt Date: 20220118
  Transmission Date: 20220423
  Serious: Yes (Other)
  Sender: FDA-Public Use
  Company Number: BR-NOVARTISPH-NVSC2021BR302136

PATIENT
  Age: 46 Year
  Sex: Female

DRUGS (3)
  1. LOSARTAN [Suspect]
     Active Substance: LOSARTAN
     Indication: Product used for unknown indication
     Dosage: UNK
     Route: 065
  2. DOXORUBICIN [Concomitant]
     Active Substance: DOXORUBICIN
     Indication: Product used for unknown indication
     Dosage: UNK (EVERY 21 DAYS)
     Route: 065
  3. CYCLOPHOSPHAMIDE [Concomitant]
     Active Substance: CYCLOPHOSPHAMIDE
     Indication: Product used for unknown indication
     Dosage: UNK (EVERY 21 DAYS)
     Route: 065

REACTIONS (5)
  - Invasive breast carcinoma [Unknown]
  - Metastases to bone [Unknown]
  - Breast mass [Unknown]
  - Disease progression [Unknown]
  - Injury [Unknown]

NARRATIVE: CASE EVENT DATE: 20160101
